FAERS Safety Report 24864870 (Version 3)
Quarter: 2025Q1

REPORT INFORMATION
  Report Type: Spontaneous
  Country: KR (occurrence: KR)
  Receive Date: 20250121
  Receipt Date: 20250205
  Transmission Date: 20250408
  Serious: Yes (Hospitalization, Other)
  Sender: CELLTRION
  Company Number: KR-CELLTRION INC.-2025KR001506

PATIENT

DRUGS (6)
  1. INFLIXIMAB [Suspect]
     Active Substance: INFLIXIMAB
     Indication: Crohn^s disease
     Route: 058
     Dates: start: 20230816
  2. INFLIXIMAB [Suspect]
     Active Substance: INFLIXIMAB
     Indication: Crohn^s disease
     Route: 042
     Dates: start: 20230704
  3. INFLIXIMAB [Suspect]
     Active Substance: INFLIXIMAB
     Route: 042
     Dates: start: 20230718
  4. AZAPRIN [Concomitant]
     Indication: Crohn^s disease
     Route: 048
     Dates: start: 20190828
  5. GANAFLUX [Concomitant]
     Indication: Crohn^s disease
     Route: 048
     Dates: start: 20241001, end: 20241111
  6. GASTIIN CR [Concomitant]
     Indication: Crohn^s disease
     Route: 048
     Dates: start: 20241001, end: 20241111

REACTIONS (1)
  - Haematochezia [Recovered/Resolved]

NARRATIVE: CASE EVENT DATE: 20241105
